FAERS Safety Report 10056785 (Version 1)
Quarter: 2014Q2

REPORT INFORMATION
  Report Type: Spontaneous
  Country: JP (occurrence: JP)
  Receive Date: 20140403
  Receipt Date: 20140403
  Transmission Date: 20141212
  Serious: Yes (Other)
  Sender: FDA-Public Use
  Company Number: PHHY2014JP037913

PATIENT
  Age: 76 Year
  Sex: Male

DRUGS (4)
  1. PREDNISOLONE [Suspect]
     Indication: HYPOPHYSITIS
     Dosage: 20 MG, QD
     Route: 048
  2. PREDNISOLONE [Suspect]
     Dosage: 10 MG, QD
  3. HYDROCORTISONE [Suspect]
     Indication: HYPOPHYSITIS
     Dosage: 20 MG, UNK
  4. LEVOTHYROXINE SODIUM [Concomitant]
     Indication: HYPOPHYSITIS
     Dosage: 25 UG, UNK

REACTIONS (1)
  - Diabetes insipidus [Recovering/Resolving]
